FAERS Safety Report 18465335 (Version 1)
Quarter: 2020Q4

REPORT INFORMATION
  Report Type: Spontaneous
  Country: JP (occurrence: JP)
  Receive Date: 20201105
  Receipt Date: 20201105
  Transmission Date: 20210114
  Serious: Yes (Other)
  Sender: FDA-Public Use
  Company Number: JP-JIANGSU HENGRUI MEDICINE CO., LTD.-2093610

PATIENT
  Age: 78 Year
  Sex: Male

DRUGS (2)
  1. GIMERACIL, OTERACIL POTASSIUM, TEGAFUR [Suspect]
     Active Substance: GIMERACIL\OTERACIL\TEGAFUR
  2. IRINOTECAN HYDROCHLORIDE INJECTION, 20 MG/ML (2 ML AND 5 ML VIALS) (AN [Suspect]
     Active Substance: IRINOTECAN HYDROCHLORIDE
     Indication: RECTAL CANCER

REACTIONS (3)
  - Herpes zoster [Unknown]
  - Cerebral infarction [Unknown]
  - Blister [Unknown]
